FAERS Safety Report 8393470-8 (Version None)
Quarter: 2012Q2

REPORT INFORMATION
  Report Type: 
  Country: None (occurrence: None)
  Receive Date: 20120529
  Receipt Date: 20120521
  Transmission Date: 20120825
  Serious: Yes (Death, Other)
  Sender: FDA-Public Use
  Company Number: US-ROCHE-1042317

PATIENT
  Sex: Male
  Weight: 73.094 kg

DRUGS (23)
  1. FENTANYL-100 [Concomitant]
     Indication: PAIN
  2. AVASTIN [Suspect]
     Indication: NON-SMALL CELL LUNG CANCER
     Dates: start: 20060915
  3. NORCO [Concomitant]
     Indication: PAIN
     Dosage: 10-325 MG
     Route: 048
  4. OXYCONTIN [Concomitant]
  5. PACLITAXEL [Concomitant]
     Dates: start: 20071102
  6. PACLITAXEL [Concomitant]
     Dates: start: 20080321
  7. LYRICA [Concomitant]
  8. MIRALAX [Concomitant]
  9. VITAMIN B6 [Concomitant]
     Route: 048
  10. COMBIVENT [Concomitant]
     Indication: WHEEZING
     Dosage: 1-2 PUFFS
  11. SENOKOT [Concomitant]
     Route: 048
  12. COLACE [Concomitant]
     Route: 048
  13. AVASTIN [Suspect]
     Dates: start: 20071102
  14. CARBOPLATIN [Concomitant]
     Dates: start: 20060915
  15. CARBOPLATIN [Concomitant]
     Dates: start: 20080321
  16. AVASTIN [Suspect]
     Dates: start: 20080321
  17. CARBOPLATIN [Concomitant]
     Dates: start: 20071102
  18. ALIMTA [Concomitant]
     Dates: start: 20070101, end: 20070701
  19. GEMZAR [Concomitant]
     Dates: start: 20060915
  20. TARCEVA [Concomitant]
     Dates: start: 20070910
  21. MORPHINE [Concomitant]
     Indication: PAIN
  22. COMBIVENT [Concomitant]
     Indication: DYSPNOEA
  23. HYDROCODONE BITARTRATE [Concomitant]
     Indication: PAIN
     Dosage: 10/325

REACTIONS (16)
  - ARTHRALGIA [None]
  - DIZZINESS [None]
  - DYSPNOEA [None]
  - NEUROPATHY PERIPHERAL [None]
  - BACK PAIN [None]
  - PELVIC PAIN [None]
  - HEADACHE [None]
  - CONFUSIONAL STATE [None]
  - CONSTIPATION [None]
  - PRODUCT QUALITY ISSUE [None]
  - EPISTAXIS [None]
  - CHEST PAIN [None]
  - WEIGHT DECREASED [None]
  - THROMBOCYTOPENIA [None]
  - ANAEMIA [None]
  - LUNG NEOPLASM MALIGNANT [None]
